FAERS Safety Report 10183149 (Version 1)
Quarter: 2014Q2

REPORT INFORMATION
  Report Type: Spontaneous
  Country: CN (occurrence: CN)
  Receive Date: 20140520
  Receipt Date: 20140520
  Transmission Date: 20141212
  Serious: Yes (Hospitalization, Other)
  Sender: FDA-Public Use
  Company Number: CN-ASTRAZENECA-2014SE33368

PATIENT
  Sex: Female

DRUGS (3)
  1. FELODIPINE [Suspect]
     Indication: HYPERTENSION
     Route: 048
     Dates: start: 20060403
  2. ASPIRIN [Suspect]
  3. IRBESARTAN [Suspect]

REACTIONS (7)
  - Renal impairment [Recovering/Resolving]
  - Laryngospasm [Unknown]
  - Cerebral infarction [Unknown]
  - Asthma [Unknown]
  - Coronary artery disease [Unknown]
  - Hypertension [Unknown]
  - Chronic obstructive pulmonary disease [Unknown]
